FAERS Safety Report 18258679 (Version 1)
Quarter: 2020Q3

REPORT INFORMATION
  Report Type: Other
  Country: US (occurrence: US)
  Receive Date: 20200911
  Receipt Date: 20200911
  Transmission Date: 20201103
  Serious: Yes (Other)
  Sender: FDA-Public Use
  Company Number: US-BOSCOGEN, INC.-2089671

PATIENT
  Age: 75 Year
  Sex: Male

DRUGS (1)
  1. ACYCLOVIR. [Suspect]
     Active Substance: ACYCLOVIR

REACTIONS (2)
  - Neurotoxicity [None]
  - Toxicity to various agents [None]
